FAERS Safety Report 4388689-7 (Version None)
Quarter: 2004Q2

REPORT INFORMATION
  Report Type: 
  Country: None (occurrence: None)
  Receive Date: 20040624
  Receipt Date: 20040611
  Transmission Date: 20050107
  Serious: Yes (Hospitalization)
  Sender: FDA-Public Use
  Company Number: DSA_24567_2004

PATIENT
  Age: 53 Year
  Sex: Female

DRUGS (13)
  1. ENALAPRIL MALEATE [Suspect]
     Indication: HYPERTENSION
     Dosage: 5 MG QD PO
     Route: 048
     Dates: start: 20020426, end: 20020523
  2. ATENOLOL [Suspect]
     Indication: HYPERTENSION
     Dosage: 50 MG QD PO
     Route: 048
     Dates: start: 20020426
  3. DOXAZOSIN [Suspect]
     Indication: HYPERTENSION
     Dosage: 12 MG QD PO
     Route: 048
     Dates: start: 20020418, end: 20020523
  4. FUROSEMIDE [Suspect]
     Indication: HYPERTENSION
     Dosage: 60 MG QD PO
     Route: 048
     Dates: start: 20020506, end: 20020523
  5. BLINDED STUDY DRUG/PLACEBO [Suspect]
     Indication: RENAL DISORDER
     Dosage: DF
     Dates: start: 20020325, end: 20020523
  6. PREDNISONE [Concomitant]
  7. TACROLIMUS [Concomitant]
  8. MYCOPHENOLATE MOFETIL [Concomitant]
  9. SODIUM PHOSPHATE DIBASIC [Concomitant]
  10. SULFAMETHOXAZOLE + TRIMETHOPRIM [Concomitant]
  11. OMEPRAZOLE [Concomitant]
  12. BICARBONATE [Concomitant]
  13. IRON [Concomitant]

REACTIONS (4)
  - GASTROENTERITIS [None]
  - IMMUNOSUPPRESSANT DRUG LEVEL DECREASED [None]
  - NEUTROPHIL PERCENTAGE INCREASED [None]
  - RENAL IMPAIRMENT [None]
